FAERS Safety Report 17505809 (Version 4)
Quarter: 2020Q4

REPORT INFORMATION
  Report Type: Spontaneous
  Country: CO (occurrence: CO)
  Receive Date: 20200306
  Receipt Date: 20201110
  Transmission Date: 20210113
  Serious: Yes (Other)
  Sender: FDA-Public Use
  Company Number: CO-PFIZER INC-2019148675

PATIENT
  Age: 60 Year
  Sex: Female

DRUGS (4)
  1. XALKORI [Suspect]
     Active Substance: CRIZOTINIB
     Indication: LUNG CANCER METASTATIC
     Dosage: 500 MG, UNK
     Route: 048
  2. XALKORI [Suspect]
     Active Substance: CRIZOTINIB
     Dosage: 250 MG, UNK
     Route: 048
  3. XALKORI [Suspect]
     Active Substance: CRIZOTINIB
     Dosage: 200 MG, 2X/DAY
     Route: 048
     Dates: start: 20190320, end: 202010
  4. XALKORI [Suspect]
     Active Substance: CRIZOTINIB
     Dosage: 200 MG, UNK
     Route: 048
     Dates: start: 20190301

REACTIONS (19)
  - Oropharyngeal pain [Not Recovered/Not Resolved]
  - Chest pain [Not Recovered/Not Resolved]
  - Vomiting [Unknown]
  - Swollen tongue [Unknown]
  - Dysphonia [Not Recovered/Not Resolved]
  - Throat tightness [Unknown]
  - Oesophageal food impaction [Unknown]
  - Product prescribing error [Unknown]
  - Glossodynia [Unknown]
  - Dyspnoea [Not Recovered/Not Resolved]
  - Feeding disorder [Unknown]
  - Aphasia [Unknown]
  - Aphthous ulcer [Unknown]
  - Toothache [Unknown]
  - Dizziness [Unknown]
  - Fatigue [Unknown]
  - Agitation [Unknown]
  - Gingival pain [Unknown]
  - Neoplasm progression [Unknown]

NARRATIVE: CASE EVENT DATE: 202003
